FAERS Safety Report 4377287-7 (Version None)
Quarter: 2004Q2

REPORT INFORMATION
  Report Type: 
  Country: None (occurrence: None)
  Receive Date: 20040614
  Receipt Date: 20040614
  Transmission Date: 20050107
  Serious: No
  Sender: FDA-Public Use
  Company Number: None

PATIENT
  Age: 8 Year
  Sex: Male
  Weight: 58.9676 kg

DRUGS (3)
  1. RISPERDAL [Suspect]
     Indication: ANXIETY DISORDER
     Dosage: .25 MG 4 TIMES/D ORAL; NO .25 ONLY 1/DAY
     Route: 048
     Dates: start: 20020601, end: 20040610
  2. RISPERDAL [Suspect]
     Indication: PERVASIVE DEVELOPMENTAL DISORDER
     Dosage: .25 MG 4 TIMES/D ORAL; NO .25 ONLY 1/DAY
     Route: 048
     Dates: start: 20020601, end: 20040610
  3. TOPAMAX [Concomitant]

REACTIONS (7)
  - BLOOD PROLACTIN INCREASED [None]
  - ENDOCRINE DISORDER [None]
  - GROWTH ACCELERATED [None]
  - INSULIN RESISTANCE [None]
  - POLLAKIURIA [None]
  - PRECOCIOUS PUBERTY [None]
  - WEIGHT INCREASED [None]
